FAERS Safety Report 10195740 (Version 1)
Quarter: 2014Q2

REPORT INFORMATION
  Report Type: Report from Study
  Country: AR (occurrence: AR)
  Receive Date: 20140527
  Receipt Date: 20140527
  Transmission Date: 20141212
  Serious: Yes (Hospitalization, Other)
  Sender: FDA-Public Use
  Company Number: AR-BRISTOL-MYERS SQUIBB COMPANY-20769436

PATIENT
  Age: 71 Year
  Sex: Female

DRUGS (1)
  1. YERVOY [Suspect]
     Dosage: INTERRUPTED?12MAY14
     Dates: start: 20140218

REACTIONS (2)
  - Anaemia [Unknown]
  - Hypotension [Unknown]
